FAERS Safety Report 5524523-7 (Version None)
Quarter: 2007Q4

REPORT INFORMATION
  Report Type: 
  Country: None (occurrence: None)
  Receive Date: 20071122
  Receipt Date: 20071116
  Transmission Date: 20080405
  Serious: Yes (Hospitalization)
  Sender: FDA-Public Use
  Company Number: PHRM2007FR02600

PATIENT
  Age: 66 Year
  Sex: Female

DRUGS (9)
  1. FLUDEX - SLOW RELEASE [Suspect]
     Dosage: 1.5 MG, QD
     Route: 048
     Dates: end: 20070518
  2. SOTALOL HCL [Concomitant]
     Dosage: 80 MG, BID
  3. SOTALOL HCL [Concomitant]
     Dosage: 40 MG, BID
     Route: 048
  4. NICARDIPINE HCL [Concomitant]
     Dosage: 50 MG, QD
     Route: 048
     Dates: start: 20070501
  5. XALATAN [Concomitant]
     Dosage: 1 DRP, BID
  6. TEGRETOL [Suspect]
     Dosage: UNKNOWN
     Route: 048
     Dates: end: 20070518
  7. TEGRETOL [Suspect]
     Dosage: 1.5 DF, BID
     Route: 048
     Dates: start: 19920101
  8. RIVOTRIL [Suspect]
     Dosage: 20 MG
     Route: 048
     Dates: start: 20070518, end: 20070518
  9. RIVOTRIL [Suspect]
     Dosage: 3 DRP, QD
     Route: 048
     Dates: start: 20040101

REACTIONS (12)
  - ANTICONVULSANT DRUG LEVEL ABOVE THERAPEUTIC [None]
  - BLOOD ALKALINE PHOSPHATASE INCREASED [None]
  - CHOLESTASIS [None]
  - GAMMA-GLUTAMYLTRANSFERASE INCREASED [None]
  - GLASGOW COMA SCALE ABNORMAL [None]
  - HYPOCHLORAEMIA [None]
  - HYPOKALAEMIA [None]
  - HYPONATRAEMIA [None]
  - INAPPROPRIATE ANTIDIURETIC HORMONE SECRETION [None]
  - INTENTIONAL OVERDOSE [None]
  - LOSS OF CONSCIOUSNESS [None]
  - SOMNOLENCE [None]
